FAERS Safety Report 15544689 (Version 2)
Quarter: 2018Q4

REPORT INFORMATION
  Report Type: Spontaneous
  Country: US (occurrence: US)
  Receive Date: 20181024
  Receipt Date: 20181219
  Transmission Date: 20190205
  Serious: No
  Sender: FDA-Public Use
  Company Number: US-TEVA-2018-US-964499

PATIENT
  Sex: Female

DRUGS (1)
  1. AJOVY [Suspect]
     Active Substance: FREMANEZUMAB-VFRM
     Indication: HEADACHE
     Route: 065
     Dates: start: 20181008, end: 20181008

REACTIONS (1)
  - Hypoaesthesia oral [Recovered/Resolved]

NARRATIVE: CASE EVENT DATE: 20181008
